FAERS Safety Report 13143086 (Version 1)
Quarter: 2017Q1

REPORT INFORMATION
  Report Type: Spontaneous
  Country: US (occurrence: US)
  Receive Date: 20170123
  Receipt Date: 20170123
  Transmission Date: 20170428
  Serious: Yes (Other)
  Sender: FDA-Public Use
  Company Number: None

PATIENT
  Age: 48 Year
  Sex: Male

DRUGS (1)
  1. SIROLIMUS 1MG GREENSTONE LTD [Suspect]
     Active Substance: SIROLIMUS
     Indication: ORGAN TRANSPLANT
     Route: 048
     Dates: start: 20150220

REACTIONS (1)
  - Pyrexia [None]

NARRATIVE: CASE EVENT DATE: 20170120
